FAERS Safety Report 7241782-3 (Version None)
Quarter: 2011Q1

REPORT INFORMATION
  Report Type: 
  Country: None (occurrence: None)
  Receive Date: 20110114
  Receipt Date: 20101230
  Transmission Date: 20110831
  Serious: Yes (Disabling, Other)
  Sender: FDA-Public Use
  Company Number: AUR-APL-2010-03275

PATIENT

DRUGS (1)
  1. CITALOPRAM (AUROBINDO) [Suspect]
     Dosage: 20MG-DAILY-ORAL
     Route: 048
     Dates: start: 20101101, end: 20101230

REACTIONS (8)
  - SLUGGISHNESS [None]
  - MUSCLE TWITCHING [None]
  - HEADACHE [None]
  - FATIGUE [None]
  - POLLAKIURIA [None]
  - CONDITION AGGRAVATED [None]
  - INSOMNIA [None]
  - MALAISE [None]
